FAERS Safety Report 8665772 (Version 6)
Quarter: 2014Q2

REPORT INFORMATION
  Report Type: Report from Study
  Country: US (occurrence: US)
  Receive Date: 20120716
  Receipt Date: 20140422
  Transmission Date: 20141212
  Serious: Yes (Disabling)
  Sender: FDA-Public Use
  Company Number: PHEH2012US013743

PATIENT
  Age: 47 Year
  Sex: Male
  Weight: 69 kg

DRUGS (7)
  1. TASIGNA [Suspect]
     Indication: CHRONIC MYELOID LEUKAEMIA
     Dosage: 400 MG, BID
     Route: 048
     Dates: start: 20120301
  2. ROPINIROLE [Concomitant]
     Dosage: 0.5 MG, UNK
  3. SIMVASTATIN [Concomitant]
     Dosage: 10 MG, UNK
  4. PROPRANOLOL [Concomitant]
     Dosage: 20 MG, UNK
  5. ALPRAZOLAM [Concomitant]
     Dosage: 0.25 MG, UNK
  6. ALLOPURINOL [Concomitant]
     Dosage: 100 MG, UNK
  7. CARISOPRODOL [Concomitant]
     Dosage: 250 MG, UNK

REACTIONS (17)
  - Myalgia [Not Recovered/Not Resolved]
  - Back pain [Not Recovered/Not Resolved]
  - Acne [Not Recovered/Not Resolved]
  - Erythema [Not Recovered/Not Resolved]
  - Epistaxis [Not Recovered/Not Resolved]
  - Pain of skin [Not Recovered/Not Resolved]
  - Alopecia [Not Recovered/Not Resolved]
  - Rash pruritic [Not Recovered/Not Resolved]
  - Drug intolerance [Unknown]
  - Piloerection [Unknown]
  - Skin disorder [Unknown]
  - Bone pain [Unknown]
  - Rash [Unknown]
  - Pain [Unknown]
  - Skin papilloma [Unknown]
  - Rhinorrhoea [Unknown]
  - Fatigue [Not Recovered/Not Resolved]
